FAERS Safety Report 21119505 (Version 1)
Quarter: 2022Q3

REPORT INFORMATION
  Report Type: Spontaneous
  Country: US (occurrence: US)
  Receive Date: 20220722
  Receipt Date: 20220722
  Transmission Date: 20221027
  Serious: No
  Sender: FDA-Public Use
  Company Number: US-APOTEX-2021AP042506

PATIENT
  Age: 70 Year
  Sex: Male
  Weight: 86 kg

DRUGS (10)
  1. ATORVASTATIN [Suspect]
     Active Substance: ATORVASTATIN
     Indication: Product used for unknown indication
     Dosage: 80 MILLIGRAM, QD
     Route: 048
     Dates: end: 20210802
  2. XTANDI [Suspect]
     Active Substance: ENZALUTAMIDE
     Indication: Prostate cancer
     Dosage: 80 MILLIGRAM, QD
     Route: 048
     Dates: start: 20200915
  3. XTANDI [Suspect]
     Active Substance: ENZALUTAMIDE
     Dosage: 120 MILLIGRAM, QD
     Route: 048
  4. XTANDI [Suspect]
     Active Substance: ENZALUTAMIDE
     Dosage: 160 MILLIGRAM, QD
     Route: 048
  5. BICALUTAMIDE [Concomitant]
     Active Substance: BICALUTAMIDE
     Indication: Product used for unknown indication
     Dosage: 50 MILLIGRAM
     Route: 065
  6. BUPROPION [Concomitant]
     Active Substance: BUPROPION
     Indication: Product used for unknown indication
     Dosage: UNK
     Route: 065
  7. CARVEDILOL [Concomitant]
     Active Substance: CARVEDILOL
     Indication: Product used for unknown indication
     Dosage: UNK
     Route: 065
  8. LISINOPRIL [Concomitant]
     Active Substance: LISINOPRIL
     Indication: Product used for unknown indication
     Dosage: 5 MILLIGRAM
     Route: 065
  9. OMEPRAZOLE [Concomitant]
     Active Substance: OMEPRAZOLE
     Indication: Product used for unknown indication
     Dosage: 40 MILLIGRAM
     Route: 065
  10. SPIRIVA RESPIMAT [Concomitant]
     Active Substance: TIOTROPIUM BROMIDE
     Indication: Product used for unknown indication
     Dosage: UNK
     Route: 065

REACTIONS (2)
  - Pain [Unknown]
  - Dizziness [Recovered/Resolved]

NARRATIVE: CASE EVENT DATE: 20200901
